FAERS Safety Report 22104552 (Version 1)
Quarter: 2023Q1

REPORT INFORMATION
  Report Type: Spontaneous
  Country: CA (occurrence: CA)
  Receive Date: 20230316
  Receipt Date: 20230316
  Transmission Date: 20230418
  Serious: Yes (Other)
  Sender: FDA-Public Use
  Company Number: CA-002147023-NVSC2023CA023658

PATIENT
  Age: 58 Year
  Sex: Female

DRUGS (2)
  1. ERELZI [Suspect]
     Active Substance: ETANERCEPT-SZZS
     Indication: Psoriasis
     Dosage: 50 MG, (1 EVERY 3.5 DAYS)
     Route: 065
  2. ERELZI [Suspect]
     Active Substance: ETANERCEPT-SZZS
     Dosage: 50 MG, Q2W (1 EVERY 2 WEEKS)
     Route: 065

REACTIONS (2)
  - Pharyngitis [Not Recovered/Not Resolved]
  - Product use issue [Not Recovered/Not Resolved]
